FAERS Safety Report 4897909-1 (Version None)
Quarter: 2006Q1

REPORT INFORMATION
  Report Type: 
  Country: None (occurrence: None)
  Receive Date: 20060201
  Receipt Date: 20050419
  Transmission Date: 20060701
  Serious: Yes (Hospitalization, Other)
  Sender: FDA-Public Use
  Company Number: US-MERCK-0504USA03697

PATIENT
  Age: 75 Year
  Sex: Female
  Weight: 100 kg

DRUGS (6)
  1. VIOXX [Suspect]
     Indication: ARTHRITIS
     Route: 048
     Dates: start: 20001212, end: 20040515
  2. VIOXX [Suspect]
     Route: 048
     Dates: start: 20001212, end: 20040515
  3. SYNTHROID [Concomitant]
     Route: 065
  4. SYNTHROID [Concomitant]
     Route: 065
  5. DARVOCET-N 50 [Concomitant]
     Route: 065
  6. ZANTAC [Concomitant]
     Route: 065

REACTIONS (22)
  - ANXIETY [None]
  - AZOTAEMIA [None]
  - BRONCHIOLITIS [None]
  - CEREBROVASCULAR ACCIDENT [None]
  - DEPRESSION [None]
  - FALL [None]
  - FATIGUE [None]
  - FIBROMYALGIA [None]
  - GOUTY ARTHRITIS [None]
  - GOUTY TOPHUS [None]
  - HYPERLIPIDAEMIA [None]
  - HYPERTENSION [None]
  - HYPOVOLAEMIA [None]
  - IRON DEFICIENCY ANAEMIA [None]
  - JOINT SWELLING [None]
  - MYOCARDIAL INFARCTION [None]
  - ORGAN FAILURE [None]
  - PULMONARY EMBOLISM [None]
  - RENAL FAILURE [None]
  - SLEEP DISORDER [None]
  - THROMBOSIS [None]
  - TRANSIENT ISCHAEMIC ATTACK [None]
